FAERS Safety Report 23758395 (Version 1)
Quarter: 2024Q2

REPORT INFORMATION
  Report Type: Report from Study
  Country: ES (occurrence: ES)
  Receive Date: 20240418
  Receipt Date: 20240418
  Transmission Date: 20240715
  Serious: Yes (Disabling)
  Sender: FDA-Public Use
  Company Number: ES-TEVA-VS-3183183

PATIENT
  Age: 76 Year
  Sex: Female

DRUGS (7)
  1. TERIPARATIDE [Suspect]
     Active Substance: TERIPARATIDE
     Indication: Osteoporosis
     Dosage: 20MCG/80MCL,
     Route: 065
     Dates: start: 20240401
  2. CRANBERRY [Concomitant]
     Active Substance: CRANBERRY
     Indication: Urinary tract infection
     Dosage: START DATE: LONG AGO
  3. Daflon [Concomitant]
     Indication: Peripheral venous disease
     Dosage: START DATE: LONG AGO
  4. LIORESAL [Concomitant]
     Active Substance: BACLOFEN
     Indication: Muscle spasticity
     Dosage: TIME INTERVAL: 0.33333333 DAYS: START DATE: LONG AGO
  5. CLOPIDOGREL [Concomitant]
     Active Substance: CLOPIDOGREL BISULFATE
     Indication: Anticoagulant therapy
     Dosage: START DATE: LONG AGO
  6. MEDEBIOTIN [Concomitant]
     Indication: Alopecia
     Dosage: START DATE: LONG AGO
  7. PROBIOTICS NOS [Concomitant]
     Active Substance: PROBIOTICS NOS
     Indication: Probiotic therapy
     Dosage: START DATE: LONG AGO

REACTIONS (1)
  - Bone pain [Not Recovered/Not Resolved]

NARRATIVE: CASE EVENT DATE: 20240401
